FAERS Safety Report 7737703-7 (Version None)
Quarter: 2011Q3

REPORT INFORMATION
  Report Type: 
  Country: None (occurrence: None)
  Receive Date: 20110902
  Receipt Date: 20110825
  Transmission Date: 20111222
  Serious: Yes (Other)
  Sender: FDA-Public Use
  Company Number: 2011MA012717

PATIENT
  Age: 79 Year
  Sex: Female

DRUGS (6)
  1. MIRTAZAPINE [Suspect]
  2. CITALOPRAM HYDROBROMIDE [Suspect]
     Dosage: 10 MG, QD
     Dates: start: 20110608, end: 20110608
  3. FUROSEMIDE [Concomitant]
  4. MIRTAZAPINE [Suspect]
  5. CANDESARTAN CILEXETIL [Concomitant]
  6. SIMVASTATIN [Concomitant]

REACTIONS (10)
  - CIRCULATORY COLLAPSE [None]
  - WITHDRAWAL SYNDROME [None]
  - HYPOTENSION [None]
  - NIGHTMARE [None]
  - SCREAMING [None]
  - BLOOD PRESSURE FLUCTUATION [None]
  - HAND FRACTURE [None]
  - FALL [None]
  - PALPITATIONS [None]
  - DRUG INTOLERANCE [None]
